FAERS Safety Report 9147352 (Version 1)
Quarter: 2013Q1

REPORT INFORMATION
  Report Type: Spontaneous
  Country: US (occurrence: US)
  Receive Date: 20130307
  Receipt Date: 20130307
  Transmission Date: 20140127
  Serious: Yes (Hospitalization)
  Sender: FDA-Public Use
  Company Number: US-BAYER-2013-027671

PATIENT
  Age: 49 Year
  Sex: Female
  Weight: 69.39 kg

DRUGS (9)
  1. GIANVI [Suspect]
  2. YAZ [Suspect]
  3. PROVENTIL [Concomitant]
     Dosage: 90 ?G, UNK
     Route: 045
  4. CYCLOBENZAPRINE [Concomitant]
     Dosage: 10 MG, UNK
     Route: 048
  5. SINGULAIR [Concomitant]
     Dosage: 10 MG, UNK
     Route: 048
  6. EVENING PRIMROSE OIL [Concomitant]
     Dosage: 1000 MG, UNK
     Route: 048
  7. MULTIVITAMINS AND IRON [Concomitant]
     Route: 048
  8. NATURAL VITAMIN E [Concomitant]
     Dosage: 1000 U, UNK
     Route: 048
  9. NASACORT [Concomitant]
     Route: 045

REACTIONS (1)
  - Pulmonary embolism [None]
